FAERS Safety Report 8920265 (Version 2)
Quarter: 2013Q3

REPORT INFORMATION
  Report Type: Spontaneous
  Country: US (occurrence: US)
  Receive Date: 20121121
  Receipt Date: 20130812
  Transmission Date: 20140515
  Serious: Yes (Hospitalization, Other)
  Sender: FDA-Public Use
  Company Number: US-009507513-2011SP017556

PATIENT
  Sex: Female
  Weight: 86.18 kg

DRUGS (2)
  1. NUVARING [Suspect]
     Indication: CONTRACEPTION
     Route: 067
     Dates: start: 20080104
  2. NUVARING [Suspect]
     Route: 067
     Dates: start: 200902, end: 200905

REACTIONS (2)
  - Pulmonary embolism [Recovered/Resolved]
  - Candida infection [Unknown]
